FAERS Safety Report 9414595 (Version 2)
Quarter: 2013Q3

REPORT INFORMATION
  Report Type: Report from Study
  Country: US (occurrence: US)
  Receive Date: 20130723
  Receipt Date: 20130816
  Transmission Date: 20140515
  Serious: Yes (Hospitalization)
  Sender: FDA-Public Use
  Company Number: US-PURDUE-USA-2013-0102658

PATIENT
  Age: 55 Year
  Sex: Male
  Weight: 120.64 kg

DRUGS (3)
  1. OXYCONTIN (NDA 22-272) [Suspect]
     Indication: PAIN
     Dosage: 80 MG (3 TABS QAM, 4 TABS QPM)
     Route: 048
  2. OXYCONTIN (NDA 22-272) [Suspect]
     Dosage: 560 MG, UNK
  3. CELEXA                             /00582602/ [Concomitant]
     Indication: PRODUCT USED FOR UNKNOWN INDICATION
     Dosage: 20 MG, DAILY
     Route: 048

REACTIONS (10)
  - Localised infection [Unknown]
  - Drug withdrawal syndrome [Unknown]
  - Intentional drug misuse [Not Recovered/Not Resolved]
  - Skin discolouration [Unknown]
  - Muscular weakness [Unknown]
  - Scleral haemorrhage [Unknown]
  - Pain [Not Recovered/Not Resolved]
  - Rash [Unknown]
  - Fatigue [Unknown]
  - Oedema peripheral [Unknown]
